FAERS Safety Report 21903136 (Version 2)
Quarter: 2023Q1

REPORT INFORMATION
  Report Type: Spontaneous
  Country: DE (occurrence: DE)
  Receive Date: 20230124
  Receipt Date: 20230130
  Transmission Date: 20230418
  Serious: Yes (Other)
  Sender: FDA-Public Use
  Company Number: DE-BoehringerIngelheim-2022-BI-207492

PATIENT
  Sex: Female

DRUGS (1)
  1. JARDIANCE [Suspect]
     Active Substance: EMPAGLIFLOZIN
     Indication: Product used for unknown indication

REACTIONS (5)
  - Skin necrosis [Unknown]
  - Genital infection fungal [Recovered/Resolved]
  - Skin injury [Not Recovered/Not Resolved]
  - Skin irritation [Unknown]
  - Blood glucose abnormal [Unknown]
